FAERS Safety Report 9146269 (Version 2)
Quarter: 2013Q2

REPORT INFORMATION
  Report Type: Spontaneous
  Country: US (occurrence: US)
  Receive Date: 20130307
  Receipt Date: 20130625
  Transmission Date: 20140414
  Serious: Yes (Other)
  Sender: FDA-Public Use
  Company Number: US-PFIZER INC-2013077824

PATIENT
  Age: 56 Year
  Sex: Female
  Weight: 89.8 kg

DRUGS (5)
  1. LYRICA [Suspect]
     Indication: RESTLESS LEGS SYNDROME
     Dosage: 150 MG, BID
     Route: 048
  2. LANTUS [Concomitant]
     Indication: DIABETES MELLITUS
     Dosage: 50 IU, 2X/DAY
  3. LIPITOR [Concomitant]
     Indication: BLOOD CHOLESTEROL ABNORMAL
     Dosage: 80 MG, 2X/DAY
  4. HUMALOG [Concomitant]
     Indication: DIABETES MELLITUS
     Dosage: 100 IU, 1X/DAY
  5. SIMVASTATIN [Concomitant]
     Indication: HYPERTENSION
     Dosage: 70 MG, 1X/DAY

REACTIONS (4)
  - Off label use [Unknown]
  - Glaucoma [Unknown]
  - Eye haemorrhage [Unknown]
  - Cataract [Unknown]
